FAERS Safety Report 23045913 (Version 1)
Quarter: 2023Q4

REPORT INFORMATION
  Report Type: Spontaneous
  Country: FR (occurrence: FR)
  Receive Date: 20231009
  Receipt Date: 20231009
  Transmission Date: 20240109
  Serious: Yes (Other)
  Sender: FDA-Public Use
  Company Number: FR-PFM-2023-05153

PATIENT
  Age: 62 Year
  Sex: Male

DRUGS (4)
  1. VINORELBINE [Suspect]
     Active Substance: VINORELBINE TARTRATE
     Indication: Off label use
     Dosage: UNK
     Route: 065
  2. VINORELBINE [Suspect]
     Active Substance: VINORELBINE TARTRATE
     Indication: Haematological malignancy
  3. GEMCITABINE [Suspect]
     Active Substance: GEMCITABINE
     Indication: Haematological malignancy
     Dosage: UNK
     Route: 065
  4. DOXORUBICIN [Suspect]
     Active Substance: DOXORUBICIN
     Indication: Haematological malignancy
     Dosage: UNK
     Route: 065

REACTIONS (8)
  - Colitis ulcerative [Unknown]
  - Cytomegalovirus infection [Unknown]
  - Aortitis [Unknown]
  - Septic shock [Unknown]
  - Lymphadenopathy [Unknown]
  - Mesenteric panniculitis [Unknown]
  - Product use in unapproved indication [Unknown]
  - Off label use [Unknown]
